FAERS Safety Report 9454165 (Version 1)
Quarter: 2013Q3

REPORT INFORMATION
  Report Type: Spontaneous
  Country: US (occurrence: None)
  Receive Date: 20130809
  Receipt Date: 20130809
  Transmission Date: 20140515
  Serious: No
  Sender: FDA-Public Use
  Company Number: None

PATIENT
  Age: 64 Year
  Sex: Female

DRUGS (1)
  1. STRATTERA [Suspect]
     Indication: ATTENTION DEFICIT/HYPERACTIVITY DISORDER
     Dosage: 2 CAPS ONCE DAILY TAKEN BY MOUTH
     Route: 048
     Dates: start: 20120905, end: 20120908

REACTIONS (7)
  - Pruritus genital [None]
  - Nightmare [None]
  - Logorrhoea [None]
  - Pressure of speech [None]
  - Yawning [None]
  - Tic [None]
  - Hypersexuality [None]
